FAERS Safety Report 10730906 (Version 3)
Quarter: 2015Q2

REPORT INFORMATION
  Report Type: Report from Study
  Country: IN (occurrence: IN)
  Receive Date: 20150122
  Receipt Date: 20150430
  Transmission Date: 20150821
  Serious: Yes (Hospitalization)
  Sender: FDA-Public Use
  Company Number: IN-GLAXOSMITHKLINE INC.-B0965269A

PATIENT
  Age: 61 Year
  Sex: Male
  Weight: 41 kg

DRUGS (5)
  1. TELMISARTAN. [Concomitant]
     Active Substance: TELMISARTAN
     Indication: HYPERTENSION
     Dosage: 40 MG, OD
     Route: 048
     Dates: start: 20120117
  2. FLUTICASONE FUROATE + VILANTEROL TRIFENATATE [Suspect]
     Active Substance: FLUTICASONE FUROATE\VILANTEROL TRIFENATATE
     Indication: CHRONIC OBSTRUCTIVE PULMONARY DISEASE
     Dosage: UNK
     Dates: start: 20120820
  3. VENTOLIN [Suspect]
     Active Substance: ALBUTEROL SULFATE
     Dosage: 100 MCG, UNK
     Route: 055
     Dates: start: 20120813
  4. DERIPHYLLIN [Concomitant]
     Indication: CHRONIC OBSTRUCTIVE PULMONARY DISEASE
     Dosage: 150 MG, BID
     Route: 048
     Dates: start: 20120118
  5. CLOPIDOGREL [Concomitant]
     Active Substance: CLOPIDOGREL BISULFATE
     Indication: ANTIPLATELET THERAPY
     Dosage: 75 MG, BID
     Route: 048
     Dates: start: 201201

REACTIONS (1)
  - Chronic obstructive pulmonary disease [Recovered/Resolved]

NARRATIVE: CASE EVENT DATE: 20140129
